FAERS Safety Report 12632361 (Version 2)
Quarter: 2016Q3

REPORT INFORMATION
  Report Type: Spontaneous
  Country: US (occurrence: US)
  Receive Date: 20160808
  Receipt Date: 20160808
  Transmission Date: 20161109
  Serious: No
  Sender: FDA-Public Use
  Company Number: US-BEH-2016062627

PATIENT
  Sex: Female
  Weight: 76 kg

DRUGS (20)
  1. CYCLOSPORINE. [Concomitant]
     Active Substance: CYCLOSPORINE
  2. LISINOPRIL. [Concomitant]
     Active Substance: LISINOPRIL
  3. PRAVASTATIN. [Concomitant]
     Active Substance: PRAVASTATIN
  4. FLAXSEED [Concomitant]
     Active Substance: FLAX SEED
  5. CRANBERRY. [Concomitant]
     Active Substance: CRANBERRY
  6. EPIPEN [Concomitant]
     Active Substance: EPINEPHRINE
  7. HIZENTRA [Suspect]
     Active Substance: HUMAN IMMUNOGLOBULIN G
     Indication: IMMUNODEFICIENCY COMMON VARIABLE
     Route: 058
     Dates: start: 20130311
  8. CALCIUM [Concomitant]
     Active Substance: CALCIUM
  9. LUTERA [Concomitant]
     Active Substance: ETHINYL ESTRADIOL\LEVONORGESTREL
  10. FISH OIL [Concomitant]
     Active Substance: FISH OIL
  11. PREDNISONE. [Concomitant]
     Active Substance: PREDNISONE
  12. VITAMIN B [Concomitant]
     Active Substance: VITAMIN B
  13. VITAMIN C [Concomitant]
     Active Substance: ASCORBIC ACID
  14. MULTIVITAMIN [Concomitant]
     Active Substance: VITAMINS
  15. COQ [Concomitant]
  16. DIPHENHYDRAMINE. [Concomitant]
     Active Substance: DIPHENHYDRAMINE
  17. FLONASE [Concomitant]
     Active Substance: FLUTICASONE PROPIONATE
  18. SYMBICORT [Concomitant]
     Active Substance: BUDESONIDE\FORMOTEROL FUMARATE DIHYDRATE
  19. ACETAMINOPHEN. [Concomitant]
     Active Substance: ACETAMINOPHEN
  20. ZYRTEC [Concomitant]
     Active Substance: CETIRIZINE HYDROCHLORIDE

REACTIONS (1)
  - Sinusitis [Unknown]
